FAERS Safety Report 7128060-8 (Version None)
Quarter: 2010Q4

REPORT INFORMATION
  Report Type: 
  Country: None (occurrence: None)
  Receive Date: 20101130
  Receipt Date: 20101116
  Transmission Date: 20110411
  Serious: No
  Sender: FDA-Public Use
  Company Number: US-JNJFOC-20101107111

PATIENT
  Sex: Male
  Weight: 74.39 kg

DRUGS (16)
  1. FENTANYL-100 [Suspect]
     Indication: BACK PAIN
     Route: 062
  2. FENTANYL-100 [Suspect]
     Route: 062
  3. FENTANYL-100 [Suspect]
     Indication: SYSTEMIC LUPUS ERYTHEMATOSUS
     Route: 062
  4. FENTANYL-100 [Suspect]
     Route: 062
  5. FENTANYL-100 [Suspect]
     Indication: ARTHRITIS
     Route: 062
  6. FENTANYL-100 [Suspect]
     Route: 062
  7. DURAGESIC-100 [Suspect]
     Indication: BACK PAIN
     Route: 062
  8. DURAGESIC-100 [Suspect]
     Indication: SYSTEMIC LUPUS ERYTHEMATOSUS
     Route: 062
  9. DURAGESIC-100 [Suspect]
     Indication: ARTHRITIS
     Route: 062
  10. TAGAMET [Concomitant]
     Indication: ILL-DEFINED DISORDER
     Dosage: ONE IN MORNING AND ONE AT NIGHT
     Route: 048
  11. LIPITOR [Concomitant]
     Indication: ILL-DEFINED DISORDER
     Dosage: ONE AT NIGHT
     Route: 048
  12. PRINIVIL [Concomitant]
     Indication: BLOOD PRESSURE
     Route: 048
  13. DYAZIDE [Concomitant]
     Indication: ILL-DEFINED DISORDER
     Route: 048
  14. SYNTHROID [Concomitant]
     Indication: HYPERTHYROIDISM
     Route: 048
  15. UNKNOWN MEDICATION [Concomitant]
     Indication: ARTHRITIS
     Route: 048
  16. UNKNOWN MEDICATION [Concomitant]
     Dosage: AT NIGHT
     Route: 048

REACTIONS (8)
  - DRUG DISPENSING ERROR [None]
  - DRUG DOSE OMISSION [None]
  - EXPIRED DRUG ADMINISTERED [None]
  - INADEQUATE ANALGESIA [None]
  - INSOMNIA [None]
  - PRODUCT QUALITY ISSUE [None]
  - RESTLESSNESS [None]
  - WRONG TECHNIQUE IN DRUG USAGE PROCESS [None]
